FAERS Safety Report 19415912 (Version 1)
Quarter: 2021Q2

REPORT INFORMATION
  Report Type: Spontaneous
  Country: GB (occurrence: GB)
  Receive Date: 20210615
  Receipt Date: 20210615
  Transmission Date: 20210717
  Serious: Yes (Other)
  Sender: FDA-Public Use
  Company Number: GB-TAKEDA-2021TUS036605

PATIENT
  Age: 42 Year
  Sex: Female
  Weight: 67 kg

DRUGS (11)
  1. HYPERICUM PERFORATUM [Concomitant]
     Active Substance: HYPERICUM PERFORATUM WHOLE
     Dosage: UNK
  2. CANNABIDIOL [Concomitant]
     Active Substance: CANNABIDIOL
     Dosage: 13 MILLIGRAM
  3. ACORUS CALAMUS [Concomitant]
     Dosage: UNK
  4. CURCUMA LONGA [Concomitant]
     Active Substance: HERBALS\TURMERIC
     Dosage: UNK
  5. LEONURUS CARDIACA [Concomitant]
     Dosage: UNK
  6. PASSIFLORA INCARNATA [Concomitant]
     Active Substance: HERBALS\HOMEOPATHICS\PASSIFLORA INCARNATA FLOWERING TOP
     Dosage: UNK
  7. OCIMUM TENUIFLORUM [Concomitant]
     Dosage: UNK
  8. AGRIMONIA EUPATORIA [Concomitant]
     Dosage: UNK
  9. ELEUTHEROCOCCUS SENTICOSUS [Concomitant]
     Active Substance: ELEUTHERO\HERBALS
     Dosage: UNK
  10. WITHANIA SOMNIFERA [Concomitant]
     Active Substance: HERBALS
     Dosage: UNK
  11. ENTYVIO [Suspect]
     Active Substance: VEDOLIZUMAB
     Indication: CROHN^S DISEASE
     Dosage: 108 MILLIGRAM
     Route: 051
     Dates: start: 20210420, end: 20210504

REACTIONS (6)
  - Diarrhoea [Recovered/Resolved with Sequelae]
  - Vaccination site warmth [Recovered/Resolved with Sequelae]
  - Peripheral swelling [Recovered/Resolved with Sequelae]
  - Vaccination site induration [Recovered/Resolved with Sequelae]
  - Vaccination site erythema [Recovered/Resolved with Sequelae]
  - Vaccination site inflammation [Recovered/Resolved with Sequelae]

NARRATIVE: CASE EVENT DATE: 20210420
